FAERS Safety Report 7402780-X (Version None)
Quarter: 2011Q2

REPORT INFORMATION
  Report Type: 
  Country: None (occurrence: None)
  Receive Date: 20110408
  Receipt Date: 20110331
  Transmission Date: 20111010
  Serious: Yes (Other)
  Sender: FDA-Public Use
  Company Number: CA-ROCHE-768980

PATIENT
  Sex: Female
  Weight: 64 kg

DRUGS (13)
  1. ACETAMINOPHEN [Concomitant]
     Indication: PREMEDICATION
     Route: 048
     Dates: start: 20110314, end: 20110314
  2. ZOFRAN [Concomitant]
  3. OMEGA 369 [Concomitant]
  4. APO-SULFATRIM [Concomitant]
     Dosage: FREQUENCY: MON, WED, FRI
  5. METHYLPREDNISOLONE [Concomitant]
     Indication: PREMEDICATION
     Route: 042
     Dates: start: 20110314, end: 20110314
  6. CALCIUM [Concomitant]
  7. BEVACIZUMAB [Suspect]
     Indication: GLIOBLASTOMA
     Dosage: FORM: INFUSION
     Route: 042
     Dates: start: 20101221, end: 20110314
  8. KEPPRA [Concomitant]
  9. ACETAMINOPHEN [Concomitant]
     Dosage: FREQUENCY: PRN
  10. SELENIUM [Concomitant]
  11. MAGNESIUM [Concomitant]
  12. DECADRON [Concomitant]
     Dosage: FREQUENCY: PRN
  13. DIPHENHYDRAMINE HYDROCHLORIDE [Concomitant]
     Indication: PREMEDICATION
     Route: 048
     Dates: start: 20110314, end: 20110314

REACTIONS (5)
  - CONDITION AGGRAVATED [None]
  - COUGH [None]
  - VOMITING [None]
  - RASH MACULAR [None]
  - NAUSEA [None]
